FAERS Safety Report 4444974-1 (Version None)
Quarter: 2004Q3

REPORT INFORMATION
  Report Type: 
  Country: None (occurrence: None)
  Receive Date: 20040907
  Receipt Date: 20040907
  Transmission Date: 20050211
  Serious: Yes (Hospitalization)
  Sender: FDA-Public Use
  Company Number: None

PATIENT
  Age: 64 Year
  Sex: Female
  Weight: 56 kg

DRUGS (10)
  1. LINEZOLID IV 600 MG Q 12 HOURS PFIZER [Suspect]
     Indication: ENTEROCOCCAL BACTERAEMIA
     Dosage: 600 MG Q 12 HRS IV
     Route: 042
     Dates: start: 20040813, end: 20040827
  2. LINEZOLID IV 600 MG Q 12 HOURS PFIZER [Suspect]
     Indication: GLYCOPEPTIDE ANTIBIOTIC RESISTANT ENTEROCOCCAL INFECTION
     Dosage: 600 MG Q 12 HRS IV
     Route: 042
     Dates: start: 20040813, end: 20040827
  3. ASPIRIN [Concomitant]
  4. CARVEDILOL [Concomitant]
  5. DIGOXIN [Concomitant]
  6. REGULAR INSULIN [Concomitant]
  7. MYCOPHENOLATE [Concomitant]
  8. PANTOPRAZOLE [Concomitant]
  9. PRAVASTIN [Concomitant]
  10. RAMIPRIL [Concomitant]

REACTIONS (2)
  - PLATELET COUNT DECREASED [None]
  - THERAPEUTIC RESPONSE DECREASED [None]
